FAERS Safety Report 6338772-1 (Version None)
Quarter: 2009Q3

REPORT INFORMATION
  Report Type: 
  Country: None (occurrence: None)
  Receive Date: 20090903
  Receipt Date: 20090827
  Transmission Date: 20100115
  Serious: Yes (Other)
  Sender: FDA-Public Use
  Company Number: BR-JNJFOC-20090900045

PATIENT
  Age: 64 Year
  Sex: Female
  Weight: 50 kg

DRUGS (5)
  1. IMOSEC [Suspect]
     Route: 065
  2. IMOSEC [Suspect]
     Indication: DIARRHOEA
     Route: 065
  3. METOCLOPRAMIDE [Concomitant]
     Indication: NAUSEA
  4. BROMOPRIDE [Concomitant]
     Indication: ASCITES
  5. OMEPRAZOLE [Concomitant]
     Indication: GASTRIC PH INCREASED

REACTIONS (2)
  - DYSPNOEA [None]
  - VOMITING [None]
